FAERS Safety Report 6041625-X (Version None)
Quarter: 2009Q1

REPORT INFORMATION
  Report Type: 
  Country: None (occurrence: None)
  Receive Date: 20090116
  Receipt Date: 20081028
  Transmission Date: 20090719
  Serious: No
  Sender: FDA-Public Use
  Company Number: US-BRISTOL-MYERS SQUIBB COMPANY-14386056

PATIENT
  Age: 59 Year
  Sex: Female
  Weight: 93 kg

DRUGS (5)
  1. ABILIFY [Suspect]
     Indication: BIPOLAR DISORDER
  2. ABILIFY [Suspect]
     Indication: MAJOR DEPRESSION
  3. PROZAC [Concomitant]
  4. CELEBREX [Concomitant]
  5. VYTORIN [Concomitant]

REACTIONS (1)
  - BLOOD GLUCOSE DECREASED [None]
